FAERS Safety Report 5274729-X (Version None)
Quarter: 2007Q1

REPORT INFORMATION
  Report Type: 
  Country: None (occurrence: None)
  Receive Date: 20070320
  Receipt Date: 20070305
  Transmission Date: 20070707
  Serious: No
  Sender: FDA-Public Use
  Company Number: 06-001453

PATIENT
  Age: 29 Year
  Sex: Female
  Weight: 69.4 kg

DRUGS (2)
  1. LOESTRIN 24 FE [Suspect]
     Indication: MENSTRUAL DISORDER
     Dosage: 20/1000 UG, QD, ORAL
     Route: 048
     Dates: start: 20060801, end: 20070219
  2. MULTIVITAMINS (ASCORBIC ACID, ERGOCALCIFEROL, FOLIC ACID, NICOTINAMIDE [Concomitant]

REACTIONS (3)
  - AMENORRHOEA [None]
  - HERNIA [None]
  - METRORRHAGIA [None]
